FAERS Safety Report 10762465 (Version 1)
Quarter: 2015Q1

REPORT INFORMATION
  Report Type: Spontaneous
  Country: US (occurrence: US)
  Receive Date: 20150204
  Receipt Date: 20150204
  Transmission Date: 20150721
  Serious: Yes (Other)
  Sender: FDA-Public Use
  Company Number: PHEH2014US023883

PATIENT
  Sex: Female
  Weight: 36.4 kg

DRUGS (2)
  1. TOBRAMYCIN. [Suspect]
     Active Substance: TOBRAMYCIN
     Indication: PSEUDOMONAS INFECTION
     Dosage: TWICE A DAY
     Route: 055
     Dates: start: 20141006, end: 20141101
  2. TOBI PODHALER [Suspect]
     Active Substance: TOBRAMYCIN
     Indication: PSEUDOMONAS INFECTION
     Dosage: 4 DF, BID, CAPSULE
     Route: 055
     Dates: start: 20140906, end: 20140915

REACTIONS (3)
  - Dizziness [Recovered/Resolved]
  - Tinnitus [Recovered/Resolved]
  - Drug intolerance [Unknown]
